FAERS Safety Report 13188503 (Version 1)
Quarter: 2017Q1

REPORT INFORMATION
  Report Type: Spontaneous
  Country: US (occurrence: US)
  Receive Date: 20170206
  Receipt Date: 20170206
  Transmission Date: 20170428
  Serious: No
  Sender: FDA-Public Use
  Company Number: US-BAYER-2017-020511

PATIENT
  Sex: Female

DRUGS (1)
  1. MIRENA [Suspect]
     Active Substance: LEVONORGESTREL
     Indication: CONTRACEPTION
     Dosage: 20 MCG/24HR, CONT
     Route: 015

REACTIONS (8)
  - Loss of libido [Recovering/Resolving]
  - Impaired quality of life [Recovering/Resolving]
  - Dyschezia [Recovering/Resolving]
  - Procedural pain [Recovering/Resolving]
  - Post procedural discomfort [Recovering/Resolving]
  - Nervousness [None]
  - Insomnia [Recovering/Resolving]
  - Abdominal distension [Recovering/Resolving]
